FAERS Safety Report 4974109-8 (Version None)
Quarter: 2006Q1

REPORT INFORMATION
  Report Type: 
  Country: None (occurrence: None)
  Receive Date: 20060130
  Receipt Date: 20050609
  Transmission Date: 20060701
  Serious: No
  Sender: FDA-Public Use
  Company Number: COT_0286_2005

PATIENT
  Age: 52 Year
  Sex: Female
  Weight: 67.1324 kg

DRUGS (5)
  1. VENTAVIS [Suspect]
     Indication: PULMONARY HYPERTENSION
     Dosage: 2.5 MG ONCE IH
     Route: 055
     Dates: start: 20050518, end: 20050518
  2. VENTAVIS [Suspect]
     Indication: PULMONARY HYPERTENSION
     Dosage: 5 MCG 6 TO 9X/DAY IH
     Route: 055
     Dates: start: 20050518
  3. VENTAVIS [Suspect]
     Indication: PULMONARY HYPERTENSION
     Dosage: 5 MCG 6 TO 9X/DAY IH
     Route: 055
     Dates: start: 20050518
  4. VENTAVIS [Suspect]
     Indication: PULMONARY HYPERTENSION
     Dosage: 5 MCG 6 TO 9X/DAY IH
     Route: 055
     Dates: start: 20050518
  5. VENTAVIS [Suspect]

REACTIONS (3)
  - COUGH [None]
  - PAIN IN JAW [None]
  - THROAT TIGHTNESS [None]
